FAERS Safety Report 10760915 (Version 1)
Quarter: 2015Q1

REPORT INFORMATION
  Report Type: Spontaneous
  Country: US (occurrence: None)
  Receive Date: 20150202
  Receipt Date: 20150202
  Transmission Date: 20150721
  Serious: Yes (Hospitalization)
  Sender: FDA-Public Use
  Company Number: CIO15004792

PATIENT
  Age: 17 Year
  Sex: Male

DRUGS (5)
  1. RISPERIDONE. [Concomitant]
     Active Substance: RISPERIDONE
  2. DIPHENHYDRAMINE HCL [Suspect]
     Active Substance: DIPHENHYDRAMINE HYDROCHLORIDE
     Indication: SUICIDE ATTEMPT
     Dosage: 24 25MG TABLETS OVER 3 HOURS, ORAL
     Route: 048
  3. FLUOXETINE [Concomitant]
     Active Substance: FLUOXETINE\FLUOXETINE HYDROCHLORIDE
  4. DIPHENHYDRAMINE HCL [Suspect]
     Active Substance: DIPHENHYDRAMINE HYDROCHLORIDE
     Indication: OFF LABEL USE
     Dosage: 24 25MG TABLETS OVER 3 HOURS, ORAL
     Route: 048
  5. DIPHENHYDRAMINE HCL [Suspect]
     Active Substance: DIPHENHYDRAMINE HYDROCHLORIDE
     Indication: EMOTIONAL DISORDER
     Dosage: 24 25MG TABLETS OVER 3 HOURS, ORAL
     Route: 048

REACTIONS (19)
  - Intentional overdose [None]
  - Depression [None]
  - Tremor [None]
  - Psychomotor retardation [None]
  - Drug dependence [None]
  - Substance-induced psychotic disorder [None]
  - Agitation [None]
  - Dysuria [None]
  - Poisoning [None]
  - Drug abuse [None]
  - Gender identity disorder [None]
  - Hallucination [None]
  - Fatigue [None]
  - Anhedonia [None]
  - Abnormal behaviour [None]
  - Suicide attempt [None]
  - Disturbance in attention [None]
  - Soliloquy [None]
  - Inappropriate affect [None]
